FAERS Safety Report 5700962-6 (Version None)
Quarter: 2008Q2

REPORT INFORMATION
  Report Type: 
  Country: None (occurrence: None)
  Receive Date: 20080410
  Receipt Date: 20080403
  Transmission Date: 20081010
  Serious: Yes (Death)
  Sender: FDA-Public Use
  Company Number: HQWYE321023MAY07

PATIENT
  Sex: Female

DRUGS (2)
  1. PANTECTA [Suspect]
     Indication: GASTRITIS
     Dosage: 40 MG EVERY 1 TOT
     Route: 048
     Dates: start: 20070328, end: 20070328
  2. PANTECTA [Suspect]
     Indication: DUODENITIS

REACTIONS (3)
  - ASTHENIA [None]
  - DEATH [None]
  - DIZZINESS [None]
